FAERS Safety Report 15284222 (Version 2)
Quarter: 2018Q4

REPORT INFORMATION
  Report Type: Report from Study
  Country: IT (occurrence: IT)
  Receive Date: 20180816
  Receipt Date: 20181008
  Transmission Date: 20190204
  Serious: Yes (Other)
  Sender: FDA-Public Use
  Company Number: IT-PFIZER INC-2018324275

PATIENT
  Age: 62 Year
  Sex: Female
  Weight: 102 kg

DRUGS (2)
  1. ADRIBLASTINA [Suspect]
     Active Substance: DOXORUBICIN HYDROCHLORIDE
     Indication: BREAST CANCER
     Dosage: 180 MG, CYCLIC
     Route: 042
     Dates: start: 20180615
  2. ENDOXAN-BAXTER [Suspect]
     Active Substance: CYCLOPHOSPHAMIDE
     Indication: BREAST CANCER
     Dosage: 1.2 G, CYCLIC
     Route: 042
     Dates: start: 20180615

REACTIONS (4)
  - Myalgia [Recovering/Resolving]
  - Thrombocytopenia [Recovering/Resolving]
  - Chest pain [Recovering/Resolving]
  - Hypertransaminasaemia [Recovering/Resolving]

NARRATIVE: CASE EVENT DATE: 20180623
